FAERS Safety Report 9880519 (Version 1)
Quarter: 2014Q1

REPORT INFORMATION
  Report Type: Spontaneous
  Country: US (occurrence: None)
  Receive Date: 20140206
  Receipt Date: 20140206
  Transmission Date: 20141002
  Serious: No
  Sender: FDA-Public Use
  Company Number: None

PATIENT
  Age: 30 Year
  Sex: Female
  Weight: 67.13 kg

DRUGS (1)
  1. FLUOXETINE [Suspect]
     Indication: DEPRESSION
     Dosage: 40 MG/2 PILLS ONCE DAILY TAKEN BY MOUTH
     Route: 048
     Dates: start: 20140204, end: 20140205

REACTIONS (11)
  - Throat irritation [None]
  - Oropharyngeal discomfort [None]
  - Salivary hypersecretion [None]
  - Product taste abnormal [None]
  - Eructation [None]
  - Retching [None]
  - Chills [None]
  - Chest discomfort [None]
  - Sensation of foreign body [None]
  - Dyspepsia [None]
  - Oesophageal pain [None]
